FAERS Safety Report 17379902 (Version 1)
Quarter: 2020Q1

REPORT INFORMATION
  Report Type: Spontaneous
  Country: US (occurrence: US)
  Receive Date: 20200206
  Receipt Date: 20200206
  Transmission Date: 20200409
  Serious: No
  Sender: FDA-Public Use
  Company Number: US-ABBVIE-19K-163-2675801-00

PATIENT
  Age: 76 Year
  Sex: Male
  Weight: 83.99 kg

DRUGS (4)
  1. HUMIRA [Suspect]
     Active Substance: ADALIMUMAB
     Indication: PSORIATIC ARTHROPATHY
     Route: 058
     Dates: start: 2010
  2. MULTIVITAMIN (NON-ABBVIE) [Concomitant]
     Indication: VITAMIN SUPPLEMENTATION
  3. LOSARTAN (NON-ABBVIE) [Concomitant]
     Indication: HYPERTENSION
  4. ATORVASTATIN  (NON-ABBVIE) [Concomitant]
     Indication: BLOOD CHOLESTEROL INCREASED

REACTIONS (4)
  - Fatigue [Recovered/Resolved]
  - Therapeutic response shortened [Recovered/Resolved]
  - Musculoskeletal discomfort [Recovered/Resolved]
  - Needle issue [Recovered/Resolved]

NARRATIVE: CASE EVENT DATE: 20190213
